FAERS Safety Report 15070194 (Version 3)
Quarter: 2018Q3

REPORT INFORMATION
  Report Type: Spontaneous
  Country: ES (occurrence: ES)
  Receive Date: 20180626
  Receipt Date: 20180716
  Transmission Date: 20181010
  Serious: No
  Sender: FDA-Public Use
  Company Number: ES-B.I. PHARMACEUTICALS,INC./RIDGEFIELD-2018-BI-032342

PATIENT
  Sex: Female
  Weight: 64.5 kg

DRUGS (1)
  1. JARDIANCE [Suspect]
     Active Substance: EMPAGLIFLOZIN
     Indication: TYPE 2 DIABETES MELLITUS
     Route: 065
     Dates: end: 20171011

REACTIONS (3)
  - Polyuria [Recovered/Resolved]
  - Ketoacidosis [Recovered/Resolved]
  - Weight decreased [Recovered/Resolved]

NARRATIVE: CASE EVENT DATE: 20171011
